FAERS Safety Report 6555867-8 (Version None)
Quarter: 2010Q1

REPORT INFORMATION
  Report Type: 
  Country: None (occurrence: None)
  Receive Date: 20100125
  Receipt Date: 20100114
  Transmission Date: 20100710
  Serious: Yes (Hospitalization)
  Sender: FDA-Public Use
  Company Number: 2010SP003143

PATIENT
  Age: 88 Year
  Sex: Female

DRUGS (1)
  1. REMERON [Suspect]
     Indication: DEPRESSION
     Dosage: 30 MG; QD;
     Dates: start: 20081201, end: 20091221

REACTIONS (1)
  - HYPONATRAEMIA [None]
